FAERS Safety Report 15103317 (Version 3)
Quarter: 2018Q4

REPORT INFORMATION
  Report Type: Spontaneous
  Country: JP (occurrence: JP)
  Receive Date: 20180703
  Receipt Date: 20180828
  Transmission Date: 20190204
  Serious: Yes (Life-Threatening, Other)
  Sender: FDA-Public Use
  Company Number: JP-ELI_LILLY_AND_COMPANY-JP201807000196

PATIENT
  Age: 74 Year
  Weight: 63 kg

DRUGS (7)
  1. ERBITUX [Suspect]
     Active Substance: CETUXIMAB
     Dosage: 430 MG, WEEKLY (1/W)
     Route: 041
     Dates: start: 2016, end: 20161026
  2. 5-FU                               /00098801/ [Suspect]
     Active Substance: FLUOROURACIL
     Indication: OROPHARYNGEAL CANCER
     Dosage: 1200 MG, UNKNOWN
     Route: 041
     Dates: start: 20160810, end: 20160814
  3. DECADRON [Suspect]
     Active Substance: DEXAMETHASONE
     Indication: PRODUCT USED FOR UNKNOWN INDICATION
     Dosage: 6.6 MG, WEEKLY (1/W)
     Route: 041
     Dates: start: 20160821, end: 20161026
  4. ERBITUX [Suspect]
     Active Substance: CETUXIMAB
     Indication: OROPHARYNGEAL CANCER
     Dosage: 680 MG, UNKNOWN
     Route: 041
     Dates: start: 20160821, end: 20160821
  5. DOCETAXEL. [Suspect]
     Active Substance: DOCETAXEL
     Indication: OROPHARYNGEAL CANCER
     Dosage: 100 MG, UNKNOWN
     Route: 041
     Dates: start: 20160810, end: 20160810
  6. CISPLATIN. [Suspect]
     Active Substance: CISPLATIN
     Indication: OROPHARYNGEAL CANCER
     Dosage: 52 MG, UNKNOWN
     Route: 041
     Dates: start: 20160810, end: 20160810
  7. NEORESTAR [Suspect]
     Active Substance: CHLORPHENIRAMINE MALEATE
     Indication: PRODUCT USED FOR UNKNOWN INDICATION
     Dosage: 10 MG, WEEKLY (1/W)
     Route: 041
     Dates: start: 20160821, end: 20161026

REACTIONS (4)
  - Pneumomediastinum [Recovered/Resolved]
  - Interstitial lung disease [Recovered/Resolved]
  - Pneumothorax [Recovered/Resolved]
  - Subcutaneous emphysema [Recovered/Resolved]

NARRATIVE: CASE EVENT DATE: 20161102
